FAERS Safety Report 13584331 (Version 1)
Quarter: 2017Q2

REPORT INFORMATION
  Report Type: Spontaneous
  Country: US (occurrence: US)
  Receive Date: 20170526
  Receipt Date: 20170526
  Transmission Date: 20170830
  Serious: No
  Sender: FDA-Public Use
  Company Number: US-PFIZER INC-2017233748

PATIENT
  Age: 73 Year
  Weight: 89 kg

DRUGS (1)
  1. LYRICA [Suspect]
     Active Substance: PREGABALIN
     Indication: NEUROPATHY PERIPHERAL
     Dosage: 75 MG, 2X/DAY (ONCE IN MORNING AND ONCE AT NIGHT)
     Route: 048

REACTIONS (2)
  - Discomfort [Unknown]
  - Drug effect incomplete [Not Recovered/Not Resolved]
